FAERS Safety Report 5215629-0 (Version None)
Quarter: 2007Q1

REPORT INFORMATION
  Report Type: 
  Country: None (occurrence: None)
  Receive Date: 20070123
  Receipt Date: 20070112
  Transmission Date: 20070707
  Serious: Yes (Hospitalization)
  Sender: FDA-Public Use
  Company Number: 2007SE00010

PATIENT
  Age: 73 Year
  Sex: Male

DRUGS (10)
  1. ATACAND HCT [Suspect]
     Indication: ESSENTIAL HYPERTENSION
     Dosage: 16 MG / 12.5 MG
     Route: 048
  2. METOPROLOL TARTRATE [Suspect]
     Route: 048
  3. LASIX [Suspect]
     Route: 048
  4. ASPIRIN [Suspect]
     Route: 048
  5. DIKLOFENAC [Suspect]
     Indication: GOUT
     Route: 048
  6. METFORMIN HCL [Suspect]
     Route: 048
  7. FOLACIN [Concomitant]
     Route: 048
  8. BEHEPAN [Concomitant]
     Route: 048
  9. LANSOPRAZOLE [Concomitant]
     Route: 048
  10. GLIBENKLAMID [Concomitant]
     Route: 048

REACTIONS (4)
  - ANAEMIA [None]
  - BLOOD CREATININE INCREASED [None]
  - GASTROINTESTINAL HAEMORRHAGE [None]
  - SYNCOPE [None]
